FAERS Safety Report 11518175 (Version 2)
Quarter: 2015Q3

REPORT INFORMATION
  Report Type: Report from Study
  Country: ID (occurrence: ID)
  Receive Date: 20150917
  Receipt Date: 20150930
  Transmission Date: 20151125
  Serious: Yes (Other)
  Sender: FDA-Public Use
  Company Number: ID-BAYER-2015-417754

PATIENT
  Age: 26 Year
  Sex: Female

DRUGS (1)
  1. NEXAVAR [Suspect]
     Active Substance: SORAFENIB
     Indication: HEPATOCELLULAR CARCINOMA
     Dosage: 400 MG, TOTAL DAILY DOSE
     Route: 048
     Dates: start: 20150808

REACTIONS (8)
  - Nail discolouration [Not Recovered/Not Resolved]
  - Cancer pain [Not Recovered/Not Resolved]
  - Dry skin [None]
  - Gingival bleeding [Not Recovered/Not Resolved]
  - Nausea [Recovered/Resolved]
  - Weight decreased [None]
  - Abdominal distension [Recovered/Resolved]
  - Alopecia [None]

NARRATIVE: CASE EVENT DATE: 201508
